FAERS Safety Report 9550742 (Version 1)
Quarter: 2013Q3

REPORT INFORMATION
  Report Type: Spontaneous
  Country: US (occurrence: US)
  Receive Date: 20130924
  Receipt Date: 20130924
  Transmission Date: 20140515
  Serious: No
  Sender: FDA-Public Use
  Company Number: US-SANOFI-AVENTIS-2013SA047361

PATIENT
  Age: 39 Year
  Sex: Female

DRUGS (1)
  1. AUBAGIO [Suspect]
     Indication: MULTIPLE SCLEROSIS
     Route: 048
     Dates: start: 20130326, end: 20130611

REACTIONS (4)
  - Affect lability [Unknown]
  - Malaise [Recovering/Resolving]
  - Diarrhoea [Recovering/Resolving]
  - Alopecia [Recovering/Resolving]
